FAERS Safety Report 9416551 (Version 1)
Quarter: 2013Q3

REPORT INFORMATION
  Report Type: Spontaneous
  Country: US (occurrence: US)
  Receive Date: 20130724
  Receipt Date: 20130724
  Transmission Date: 20140515
  Serious: Yes (Life-Threatening, Hospitalization, Other)
  Sender: FDA-Public Use
  Company Number: US-ELI_LILLY_AND_COMPANY-US201307007289

PATIENT
  Age: 58 Year
  Sex: Female

DRUGS (7)
  1. HUMALOG LISPRO [Suspect]
     Indication: DIABETES MELLITUS
     Dosage: 40 U, TID
     Dates: start: 2010
  2. LANTUS [Concomitant]
     Dosage: 40-50 U, EACH EVENING
  3. PRAVASTATIN [Concomitant]
     Dosage: 40 MG, EACH EVENING
  4. METFORMIN [Concomitant]
     Dosage: 1000 MG, BID
  5. METOPROLOL [Concomitant]
     Dosage: 25 MG, QD
  6. OMEPRAZOLE [Concomitant]
     Dosage: 20 MG, QD
  7. AMLODIPINE [Concomitant]
     Dosage: 10 MG, QD

REACTIONS (17)
  - Cardio-respiratory distress [Recovered/Resolved]
  - Blood glucose increased [Unknown]
  - Blindness transient [Recovered/Resolved]
  - Weight decreased [Recovered/Resolved]
  - Decreased appetite [Unknown]
  - Influenza like illness [Unknown]
  - Heart rate increased [Unknown]
  - Glycosylated haemoglobin increased [Unknown]
  - Feeling abnormal [Unknown]
  - Vision blurred [Unknown]
  - Halo vision [Unknown]
  - Diabetic eye disease [Not Recovered/Not Resolved]
  - Fall [Unknown]
  - Tremor [Unknown]
  - Joint injury [Unknown]
  - Memory impairment [Unknown]
  - Drug dose omission [Unknown]
